FAERS Safety Report 23532064 (Version 4)
Quarter: 2025Q1

REPORT INFORMATION
  Report Type: Spontaneous
  Country: US (occurrence: US)
  Receive Date: 20240216
  Receipt Date: 20250117
  Transmission Date: 20250409
  Serious: Yes (Other)
  Sender: SANOFI AVENTIS
  Company Number: US-SA-SAC20240214000164

PATIENT
  Age: 48 Year
  Sex: Female

DRUGS (1)
  1. DUPIXENT [Suspect]
     Active Substance: DUPILUMAB
     Indication: Eosinophilic oesophagitis
     Dosage: UNK, QOW
     Route: 058
     Dates: start: 20220930

REACTIONS (6)
  - Crohn^s disease [Recovering/Resolving]
  - Attention deficit hyperactivity disorder [Recovering/Resolving]
  - Dysphonia [Recovering/Resolving]
  - Gastric infection [Unknown]
  - Nasopharyngitis [Recovering/Resolving]
  - Injection site swelling [Recovered/Resolved]

NARRATIVE: CASE EVENT DATE: 20221001
